FAERS Safety Report 12455090 (Version 1)
Quarter: 2016Q2

REPORT INFORMATION
  Report Type: Spontaneous
  Country: US (occurrence: None)
  Receive Date: 20160609
  Receipt Date: 20160609
  Transmission Date: 20160815
  Serious: Yes (Death, Life-Threatening, Hospitalization)
  Sender: FDA-Public Use
  Company Number: None

PATIENT
  Age: 70 Year
  Sex: Male
  Weight: 100.2 kg

DRUGS (1)
  1. ATORVASTATIN [Suspect]
     Active Substance: ATORVASTATIN
     Indication: CORONARY ARTERY DISEASE
     Route: 048
     Dates: start: 20150906, end: 20151005

REACTIONS (8)
  - Myopathy [None]
  - Muscular weakness [None]
  - Rhabdomyolysis [None]
  - Hepatic cirrhosis [None]
  - Cardiac failure congestive [None]
  - Liver injury [None]
  - Myositis [None]
  - Hypertension [None]

NARRATIVE: CASE EVENT DATE: 20151005
